FAERS Safety Report 10482600 (Version 1)
Quarter: 2014Q3

REPORT INFORMATION
  Report Type: Report from Study
  Country: US (occurrence: US)
  Receive Date: 20140929
  Receipt Date: 20140929
  Transmission Date: 20150326
  Serious: Yes (Hospitalization)
  Sender: FDA-Public Use
  Company Number: US-MERCK-1409USA013215

PATIENT
  Age: 59 Year
  Sex: Female
  Weight: 54 kg

DRUGS (6)
  1. VORINOSTAT [Suspect]
     Active Substance: VORINOSTAT
     Indication: ACUTE MYELOID LEUKAEMIA
     Dosage: 500 MG, TID
     Route: 048
     Dates: start: 20140825, end: 20140828
  2. VORINOSTAT [Suspect]
     Active Substance: VORINOSTAT
     Dosage: 500 MG, TID
     Route: 048
     Dates: start: 20140522, end: 20140524
  3. IDARUBICIN [Suspect]
     Active Substance: IDARUBICIN
     Indication: ACUTE MYELOID LEUKAEMIA
     Dosage: 8 MG/M2, QD
     Route: 042
     Dates: start: 20140828
  4. CYTARABINE. [Suspect]
     Active Substance: CYTARABINE
     Dosage: 1500 MG/M2, QD
     Route: 042
     Dates: start: 20140525, end: 20140527
  5. IDARUBICIN [Suspect]
     Active Substance: IDARUBICIN
     Dosage: 12 MG/M2, UNK
     Route: 042
     Dates: start: 20140525, end: 20140527
  6. CYTARABINE. [Suspect]
     Active Substance: CYTARABINE
     Indication: ACUTE MYELOID LEUKAEMIA
     Dosage: 750 MG/M2, QD
     Route: 042
     Dates: start: 20140828

REACTIONS (2)
  - Rash maculo-papular [Recovered/Resolved]
  - Febrile neutropenia [Recovered/Resolved]

NARRATIVE: CASE EVENT DATE: 20140909
